FAERS Safety Report 15350819 (Version 2)
Quarter: 2018Q3

REPORT INFORMATION
  Report Type: Report from Study
  Country: GB (occurrence: GB)
  Receive Date: 20180905
  Receipt Date: 20180911
  Transmission Date: 20181010
  Serious: Yes (Hospitalization)
  Sender: FDA-Public Use
  Company Number: GB-ROCHE-2179791

PATIENT
  Age: 68 Year
  Sex: Male
  Weight: 74 kg

DRUGS (14)
  1. COBIMETINIB. [Suspect]
     Active Substance: COBIMETINIB
     Indication: MALIGNANT MELANOMA
     Dosage: ON 16/AUG/2018, HE RECEIVED THE MOST RECENT DOSE OF COBIMETINIB (60MG) PRIOR TO EVENT ONSET.
     Route: 048
     Dates: start: 20180802
  2. PARACETAMOL [Concomitant]
     Active Substance: ACETAMINOPHEN
     Indication: RHEUMATOID ARTHRITIS
     Route: 048
     Dates: start: 20100601
  3. SENNA [Concomitant]
     Active Substance: SENNA LEAF\SENNOSIDES\SENNOSIDES A AND B
     Indication: CONSTIPATION
     Route: 048
     Dates: start: 20161020
  4. GLYCERYL TRINITRATE [Concomitant]
     Active Substance: NITROGLYCERIN
     Indication: ANGINA PECTORIS
     Route: 048
     Dates: start: 20140429
  5. RAMIPRIL. [Concomitant]
     Active Substance: RAMIPRIL
     Indication: ESSENTIAL HYPERTENSION
     Route: 048
     Dates: start: 20140422
  6. ASPIRIN. [Concomitant]
     Active Substance: ASPIRIN
     Indication: ANGINA PECTORIS
     Route: 048
     Dates: start: 20110817
  7. LOPERAMIDE [Concomitant]
     Active Substance: LOPERAMIDE
     Indication: DIARRHOEA
     Route: 048
     Dates: start: 20180809, end: 20180830
  8. ATEZOLIZUMAB. [Suspect]
     Active Substance: ATEZOLIZUMAB
     Indication: MALIGNANT MELANOMA
     Dosage: ON 30/AUG/2018, HE RECEIVED THE MOST RECENT DOSE OF ATEZOLIZUMAB PRIOR TO EVENT ONSET.
     Route: 042
     Dates: start: 20180802
  9. FOLIC ACID. [Concomitant]
     Active Substance: FOLIC ACID
     Indication: RHEUMATOID ARTHRITIS
     Route: 048
     Dates: start: 20160830
  10. EUMOVATE [Concomitant]
     Active Substance: CLOBETASONE BUTYRATE
     Indication: PSORIASIS
     Route: 061
     Dates: start: 20180212
  11. PREDNISOLONE. [Concomitant]
     Active Substance: PREDNISOLONE
     Indication: RASH MACULO-PAPULAR
     Route: 048
     Dates: start: 20180816, end: 20180830
  12. DIAZEPAM. [Concomitant]
     Active Substance: DIAZEPAM
     Indication: DEPRESSION
     Route: 048
     Dates: start: 20000601
  13. BISOPROLOL [Concomitant]
     Active Substance: BISOPROLOL
     Indication: ESSENTIAL HYPERTENSION
     Route: 048
     Dates: start: 20140422
  14. SIMVASTATIN. [Concomitant]
     Active Substance: SIMVASTATIN
     Indication: ANGINA PECTORIS
     Route: 048
     Dates: start: 20140429

REACTIONS (1)
  - Infusion related reaction [Recovered/Resolved]

NARRATIVE: CASE EVENT DATE: 20180830
